FAERS Safety Report 4888947-3 (Version None)
Quarter: 2006Q1

REPORT INFORMATION
  Report Type: 
  Country: None (occurrence: None)
  Receive Date: 20060123
  Receipt Date: 20050406
  Transmission Date: 20060701
  Serious: Yes (Hospitalization)
  Sender: FDA-Public Use
  Company Number: US-MERCK-0504USA01059

PATIENT
  Age: 48 Year
  Sex: Female
  Weight: 90 kg

DRUGS (11)
  1. VIOXX [Suspect]
     Indication: OEDEMA PERIPHERAL
     Route: 048
     Dates: start: 20010101, end: 20040901
  2. SYNTHROID [Concomitant]
     Route: 065
  3. TENORMIN [Concomitant]
     Route: 065
  4. PREMARIN [Concomitant]
     Route: 065
  5. LASIX [Concomitant]
     Route: 065
  6. ALBUTEROL [Concomitant]
     Route: 065
  7. ATENOLOL [Concomitant]
     Route: 065
  8. CELEXA [Concomitant]
     Route: 065
  9. IBUPROFEN [Concomitant]
     Route: 065
  10. DARVON [Concomitant]
     Route: 065
  11. ALPRAZOLAM [Concomitant]
     Route: 065

REACTIONS (8)
  - ANXIETY [None]
  - CARDIAC FAILURE CONGESTIVE [None]
  - CARDIOMEGALY [None]
  - CARPAL TUNNEL SYNDROME [None]
  - EMOTIONAL DISTRESS [None]
  - JOINT SPRAIN [None]
  - SYNCOPE [None]
  - TENOSYNOVITIS [None]
